FAERS Safety Report 4759063-6 (Version None)
Quarter: 2005Q3

REPORT INFORMATION
  Report Type: 
  Country: None (occurrence: None)
  Receive Date: 20050901
  Receipt Date: 20050830
  Transmission Date: 20060218
  Serious: Yes (Other)
  Sender: FDA-Public Use
  Company Number: PHFR2005GB02901

PATIENT
  Age: 76 Year
  Sex: Female
  Weight: 45 kg

DRUGS (1)
  1. OCTREOTIDE [Suspect]
     Indication: CARCINOID SYNDROME
     Dosage: 10MG/DAY
     Route: 065
     Dates: start: 20050106, end: 20050630

REACTIONS (2)
  - CONFUSIONAL STATE [None]
  - FATIGUE [None]
